FAERS Safety Report 21662005 (Version 1)
Quarter: 2022Q4

REPORT INFORMATION
  Report Type: Spontaneous
  Country: US (occurrence: US)
  Receive Date: 20221130
  Receipt Date: 20221130
  Transmission Date: 20230113
  Serious: Yes (Other)
  Sender: FDA-Public Use
  Company Number: US-MLMSERVICE-20221115-3919997-1

PATIENT
  Age: 42 Year
  Sex: Male

DRUGS (1)
  1. MOXIFLOXACIN [Suspect]
     Active Substance: MOXIFLOXACIN
     Indication: Endophthalmitis
     Dosage: APPROXIMATELY 0.2 ML UNDILUTED

REACTIONS (3)
  - Incorrect route of product administration [Recovered/Resolved]
  - Corneal oedema [Recovering/Resolving]
  - Toxic anterior segment syndrome [Recovering/Resolving]
